FAERS Safety Report 17199435 (Version 1)
Quarter: 2019Q4

REPORT INFORMATION
  Report Type: Spontaneous
  Country: FR (occurrence: FR)
  Receive Date: 20191226
  Receipt Date: 20191226
  Transmission Date: 20200122
  Serious: Yes (Life-Threatening)
  Sender: FDA-Public Use
  Company Number: FR-EMD SERONO-E2B_90073338

PATIENT
  Age: 39 Year
  Sex: Female
  Weight: 57 kg

DRUGS (3)
  1. PROGESTAN [Suspect]
     Active Substance: PROGESTERONE
     Indication: CONTROLLED OVARIAN STIMULATION
     Route: 067
     Dates: start: 20191017, end: 20191031
  2. OVITRELLE [Suspect]
     Active Substance: CHORIOGONADOTROPIN ALFA
     Indication: CONTROLLED OVARIAN STIMULATION
     Dosage: 1 (UNSPECIFIED UNIT)
     Route: 058
     Dates: start: 20191017, end: 20191017
  3. PUREGON                            /01348901/ [Suspect]
     Active Substance: FOLLITROPIN
     Indication: CONTROLLED OVARIAN STIMULATION
     Dosage: 1 (UNSPECIFIED UNIT)
     Route: 058
     Dates: start: 20191010, end: 20191017

REACTIONS (3)
  - Ovarian hyperstimulation syndrome [Recovered/Resolved]
  - Cardiac tamponade [Recovered/Resolved]
  - Pleural effusion [Recovered/Resolved]

NARRATIVE: CASE EVENT DATE: 20191110
